FAERS Safety Report 21494190 (Version 1)
Quarter: 2022Q4

REPORT INFORMATION
  Report Type: Other
  Country: None (occurrence: TH)
  Receive Date: 20221021
  Receipt Date: 20221021
  Transmission Date: 20230113
  Serious: Yes (Hospitalization)
  Sender: FDA-Public Use
  Company Number: TH-B.Braun Medical Inc.-2134096

PATIENT
  Age: 31 Year
  Sex: Female

DRUGS (3)
  1. ACETAMINOPHEN [Suspect]
     Active Substance: ACETAMINOPHEN
  2. MEROPENEM [Suspect]
     Active Substance: MEROPENEM
  3. ASTRAZENECA COVID-19 VACCINE [Suspect]
     Active Substance: AZD-1222

REACTIONS (1)
  - Drug ineffective [Unknown]
